FAERS Safety Report 8437345-4 (Version None)
Quarter: 2012Q2

REPORT INFORMATION
  Report Type: 
  Country: None (occurrence: None)
  Receive Date: 20120614
  Receipt Date: 20120313
  Transmission Date: 20120825
  Serious: No
  Sender: FDA-Public Use
  Company Number: US-AMGEN-USASP2011065705

PATIENT
  Age: 74 Year
  Sex: Female

DRUGS (15)
  1. PROLIA [Suspect]
     Indication: OSTEOPOROSIS POSTMENOPAUSAL
     Dosage: UNK
     Dates: start: 20111109
  2. NIFEDIPINE [Concomitant]
     Dosage: UNK
  3. DIPHENOXYLATE [Concomitant]
     Dosage: UNK
  4. CALCIUM [Concomitant]
     Dosage: UNK
  5. PREDNISONE TAB [Concomitant]
     Dosage: UNK
  6. LOSARTAN POTASSIUM [Concomitant]
     Dosage: UNK
  7. CYANOCOBALAMIN [Concomitant]
     Dosage: UNK
  8. ENALAPRIL MALEATE [Concomitant]
     Dosage: UNK
  9. VITAMIN D [Concomitant]
     Dosage: UNK
  10. METOPROLOL TARTRATE [Concomitant]
     Dosage: UNK
  11. RANITIDINE [Concomitant]
     Dosage: UNK
  12. METHYLPREDNISOLONE [Concomitant]
     Dosage: UNK
  13. PULMICORT [Concomitant]
     Dosage: UNK
  14. IRON [Concomitant]
     Dosage: UNK
  15. NEXIUM [Concomitant]
     Dosage: UNK

REACTIONS (7)
  - TOOTH LOSS [None]
  - HYPOAESTHESIA [None]
  - RED BLOOD CELL COUNT INCREASED [None]
  - GAIT DISTURBANCE [None]
  - PAIN [None]
  - PAIN IN EXTREMITY [None]
  - TOOTH EXTRACTION [None]
